FAERS Safety Report 25415912 (Version 4)
Quarter: 2025Q3

REPORT INFORMATION
  Report Type: Spontaneous
  Country: JP (occurrence: JP)
  Receive Date: 20250610
  Receipt Date: 20250730
  Transmission Date: 20251020
  Serious: No
  Sender: CSL BEHRING
  Company Number: JP-BEH-2025208643

PATIENT
  Age: 35 Year
  Sex: Male
  Weight: 63 kg

DRUGS (4)
  1. BERINERT [Suspect]
     Active Substance: HUMAN C1-ESTERASE INHIBITOR
     Indication: Hereditary angioedema
     Route: 042
     Dates: start: 20250523, end: 20250523
  2. BERINERT [Suspect]
     Active Substance: HUMAN C1-ESTERASE INHIBITOR
     Indication: Hereditary angioedema
     Route: 042
     Dates: start: 20250523, end: 20250523
  3. BERINERT [Suspect]
     Active Substance: HUMAN C1-ESTERASE INHIBITOR
     Indication: Hereditary angioedema
     Route: 042
     Dates: start: 20250523, end: 20250523
  4. BERINERT [Suspect]
     Active Substance: HUMAN C1-ESTERASE INHIBITOR
     Indication: Hereditary angioedema
     Route: 042
     Dates: start: 20250523, end: 20250523

REACTIONS (1)
  - Device issue [Unknown]

NARRATIVE: CASE EVENT DATE: 20250523
